FAERS Safety Report 9816972 (Version 2)
Quarter: 2014Q1

REPORT INFORMATION
  Report Type: Spontaneous
  Country: BR (occurrence: BR)
  Receive Date: 20140114
  Receipt Date: 20140217
  Transmission Date: 20141002
  Serious: Yes (Other)
  Sender: FDA-Public Use
  Company Number: PHHY2014BR003745

PATIENT
  Sex: Female

DRUGS (2)
  1. FORASEQ [Suspect]
     Dosage: UNK UKN, UNK (12/200 UG)
  2. FORASEQ [Suspect]
     Dosage: UNK UKN, UNK (12/400 UG)

REACTIONS (6)
  - Nasal cavity cancer [Unknown]
  - Cardiac valve disease [Unknown]
  - Pneumonia [Unknown]
  - Lower respiratory tract inflammation [Unknown]
  - Incorrect dose administered [Unknown]
  - Tremor [Unknown]
